FAERS Safety Report 6762127-9 (Version None)
Quarter: 2010Q2

REPORT INFORMATION
  Report Type: 
  Country: None (occurrence: None)
  Receive Date: 20100609
  Receipt Date: 20100526
  Transmission Date: 20101027
  Serious: No
  Sender: FDA-Public Use
  Company Number: US-B.I. PHARMACEUTICALS,INC./RIDGEFIELD-2010-BP-05918BP

PATIENT
  Sex: Female

DRUGS (5)
  1. MIRAPEX [Suspect]
     Indication: PARKINSON'S DISEASE
     Dosage: 3 MG
     Route: 048
     Dates: start: 20100511, end: 20100518
  2. MIRAPEX [Suspect]
     Dosage: 4.5 MG
     Route: 048
     Dates: start: 20100518
  3. SINEMET [Concomitant]
     Indication: PARKINSON'S DISEASE
  4. VITAMINS [Concomitant]
     Indication: PROPHYLAXIS
  5. LEVOTHYROXINE SODIUM [Concomitant]
     Indication: HYPOTHYROIDISM

REACTIONS (2)
  - DYSKINESIA [None]
  - FEELING ABNORMAL [None]
